FAERS Safety Report 4884674-7 (Version None)
Quarter: 2006Q1

REPORT INFORMATION
  Report Type: 
  Country: None (occurrence: None)
  Receive Date: 20060117
  Receipt Date: 20060104
  Transmission Date: 20060701
  Serious: Yes (Death)
  Sender: FDA-Public Use
  Company Number: S05-USA-04894-01

PATIENT
  Age: 91 Year
  Sex: Male

DRUGS (5)
  1. COMBUNOX [Suspect]
     Indication: BACK PAIN
     Dosage: 1 TABLET PRN PO
     Route: 048
     Dates: start: 20051019, end: 20051023
  2. COMBUNOX [Suspect]
     Indication: SCOLIOSIS
     Dosage: 1 TABLET PRN PO
     Route: 048
     Dates: start: 20051019, end: 20051023
  3. ZOCOR [Concomitant]
  4. COZAAR [Concomitant]
  5. HYDROCHLOROTHIAZIDE [Concomitant]

REACTIONS (39)
  - ABDOMINAL DISTENSION [None]
  - ARTERIOSCLEROSIS [None]
  - ATELECTASIS [None]
  - BACTERIA URINE IDENTIFIED [None]
  - BACTERIURIA [None]
  - BAND NEUTROPHIL PERCENTAGE INCREASED [None]
  - BLOOD ALBUMIN DECREASED [None]
  - BLOOD ALKALINE PHOSPHATASE INCREASED [None]
  - BLOOD AMYLASE INCREASED [None]
  - BLOOD CALCIUM DECREASED [None]
  - BLOOD CREATININE INCREASED [None]
  - BLOOD GLUCOSE INCREASED [None]
  - BLOOD PRESSURE INCREASED [None]
  - BLOOD SODIUM DECREASED [None]
  - BLOOD UREA INCREASED [None]
  - BLOOD URINE PRESENT [None]
  - CONSTIPATION [None]
  - CONTUSION [None]
  - DEHYDRATION [None]
  - GALLBLADDER ENLARGEMENT [None]
  - GASTRIC HAEMORRHAGE [None]
  - GASTROINTESTINAL ISCHAEMIA [None]
  - HEART RATE DECREASED [None]
  - HEPATIC INFARCTION [None]
  - HEPATIC STEATOSIS [None]
  - INTESTINAL INFARCTION [None]
  - LUNG INFILTRATION [None]
  - LYMPHOCYTE PERCENTAGE DECREASED [None]
  - MEAN PLATELET VOLUME INCREASED [None]
  - MUSCLE DISORDER [None]
  - MUSCLE HAEMORRHAGE [None]
  - PLATELET COUNT DECREASED [None]
  - PROTEIN TOTAL DECREASED [None]
  - ROAD TRAFFIC ACCIDENT [None]
  - SPECIFIC GRAVITY URINE INCREASED [None]
  - SPLEEN DISORDER [None]
  - SPLENIC INFARCTION [None]
  - STAPHYLOCOCCAL INFECTION [None]
  - WHITE BLOOD CELL COUNT INCREASED [None]
